FAERS Safety Report 6923584-8 (Version None)
Quarter: 2010Q3

REPORT INFORMATION
  Report Type: 
  Country: None (occurrence: None)
  Receive Date: 20100813
  Receipt Date: 20100805
  Transmission Date: 20110219
  Serious: Yes (Other)
  Sender: FDA-Public Use
  Company Number: A0875322A

PATIENT
  Sex: Female

DRUGS (1)
  1. AVANDIA [Suspect]
     Dosage: 4MG PER DAY
     Route: 048
     Dates: start: 19990101, end: 20060101

REACTIONS (6)
  - BLINDNESS UNILATERAL [None]
  - CARDIAC DISORDER [None]
  - DYSPNOEA [None]
  - HEART RATE IRREGULAR [None]
  - MACULAR OEDEMA [None]
  - PULMONARY HYPERTENSION [None]
